FAERS Safety Report 4374053-3 (Version None)
Quarter: 2004Q2

REPORT INFORMATION
  Report Type: 
  Country: None (occurrence: None)
  Receive Date: 20040607
  Receipt Date: 20040528
  Transmission Date: 20050107
  Serious: Yes (Life-Threatening)
  Sender: FDA-Public Use
  Company Number: IT-AMGEN-US078586

PATIENT
  Sex: Female

DRUGS (1)
  1. ENBREL [Suspect]
     Indication: RHEUMATOID ARTHRITIS
     Route: 058
     Dates: start: 20040504, end: 20040518

REACTIONS (7)
  - BRONCHOSPASM [None]
  - COMPLEMENT FACTOR C3 DECREASED [None]
  - COMPLEMENT FACTOR C4 DECREASED [None]
  - CRYOGLOBULINS PRESENT [None]
  - EYELID OEDEMA [None]
  - HEPATITIS C POSITIVE [None]
  - VASCULAR PURPURA [None]
